FAERS Safety Report 15215157 (Version 1)
Quarter: 2018Q3

REPORT INFORMATION
  Report Type: Spontaneous
  Country: TW (occurrence: TW)
  Receive Date: 20180730
  Receipt Date: 20180730
  Transmission Date: 20181010
  Serious: Yes (Hospitalization, Other)
  Sender: FDA-Public Use
  Company Number: TW-ABBVIE-18K-153-2428218-00

PATIENT
  Age: 78 Year
  Sex: Female

DRUGS (1)
  1. ADALIMUMAB [Suspect]
     Active Substance: ADALIMUMAB
     Indication: RHEUMATOID ARTHRITIS
     Route: 058
     Dates: start: 20121212, end: 20180627

REACTIONS (28)
  - Lacunar infarction [Unknown]
  - Diabetes mellitus [Recovering/Resolving]
  - Cellulitis [Unknown]
  - Cerebral atrophy [Unknown]
  - Chills [Unknown]
  - Pulmonary mass [Unknown]
  - Aortic disorder [Unknown]
  - Osteoarthritis [Unknown]
  - Dysuria [Unknown]
  - Thirst [Unknown]
  - Melaena [Unknown]
  - Hyponatraemia [Unknown]
  - Cardiac disorder [Unknown]
  - Leukocytosis [Unknown]
  - Vertebral osteophyte [Unknown]
  - Arteriosclerosis [Unknown]
  - C-reactive protein increased [Unknown]
  - Cough [Not Recovered/Not Resolved]
  - Oedema [Unknown]
  - Pain [Not Recovered/Not Resolved]
  - Central nervous system lesion [Unknown]
  - Carotid arteriosclerosis [Unknown]
  - Aortic arteriosclerosis [Unknown]
  - Feeling hot [Not Recovered/Not Resolved]
  - Peripheral swelling [Not Recovered/Not Resolved]
  - Abscess limb [Unknown]
  - Demyelination [Unknown]
  - Lung infiltration [Unknown]

NARRATIVE: CASE EVENT DATE: 20180721
